FAERS Safety Report 13346879 (Version 1)
Quarter: 2017Q1

REPORT INFORMATION
  Report Type: Spontaneous
  Country: US (occurrence: US)
  Receive Date: 20170317
  Receipt Date: 20170317
  Transmission Date: 20170428
  Serious: No
  Sender: FDA-Public Use
  Company Number: US-PERRIGO-16US018333

PATIENT
  Age: 63 Year
  Sex: Male
  Weight: 105.67 kg

DRUGS (4)
  1. LANTUS [Concomitant]
     Active Substance: INSULIN GLARGINE
     Indication: TYPE 1 DIABETES MELLITUS
     Dosage: UNK
     Route: 058
  2. NICOTINE POLACRILEX [Suspect]
     Active Substance: NICOTINE
     Dosage: 4 MG, 10 TO 15 TIMES DAILY
     Route: 002
     Dates: start: 2013, end: 20160719
  3. NOVOLOG [Concomitant]
     Active Substance: INSULIN ASPART
     Indication: TYPE 1 DIABETES MELLITUS
     Dosage: UNK
     Route: 058
  4. NICOTINE POLACRILEX [Suspect]
     Active Substance: NICOTINE
     Indication: SMOKING CESSATION THERAPY
     Dosage: 4 MG, 10 TO 15 TIMES DAILY
     Route: 002
     Dates: start: 2011, end: 2011

REACTIONS (2)
  - Incorrect drug administration duration [Recovered/Resolved]
  - Dental caries [Not Recovered/Not Resolved]

NARRATIVE: CASE EVENT DATE: 2013
